FAERS Safety Report 8020536 (Version 4)
Quarter: 2012Q4

REPORT INFORMATION
  Report Type: 
  Country: US (occurrence: US)
  Receive Date: 20110705
  Receipt Date: 20121101
  Transmission Date: 20130627
  Serious: Yes (Hospitalization, Other)
  Sender: FDA-Public Use
  Company Number: US-ELI_LILLY_AND_COMPANY-US201106008815

PATIENT
  Age: 69 Year
  Sex: Male

DRUGS (3)
  1. FORTEO [Suspect]
     Indication: OSTEOPOROSIS
     Dosage: 20 u, qd
     Route: 058
     Dates: start: 20110507
  2. NSAID^S [Concomitant]
     Indication: OSTEOARTHRITIS
  3. CORTISONE [Concomitant]
     Indication: OSTEOARTHRITIS

REACTIONS (4)
  - Convulsion [Unknown]
  - Knee arthroplasty [Unknown]
  - Fatigue [Unknown]
  - Fungal infection [Unknown]
